FAERS Safety Report 5517699-9 (Version None)
Quarter: 2007Q4

REPORT INFORMATION
  Report Type: 
  Country: None (occurrence: None)
  Receive Date: 20071114
  Receipt Date: 20071102
  Transmission Date: 20080405
  Serious: Yes (Hospitalization, Other)
  Sender: FDA-Public Use
  Company Number: GB-ELI_LILLY_AND_COMPANY-GB200711000484

PATIENT
  Sex: Male

DRUGS (3)
  1. STRATTERA [Suspect]
     Dosage: 40 MG, UNKNOWN
     Route: 065
  2. EQUASYM [Concomitant]
     Dosage: 30 MG, UNKNOWN
     Route: 065
  3. EQUASYM [Concomitant]
     Dosage: 10 MG, UNKNOWN

REACTIONS (4)
  - ABNORMAL BEHAVIOUR [None]
  - DEPRESSED MOOD [None]
  - RHEUMATOID ARTHRITIS [None]
  - WEIGHT INCREASED [None]
